FAERS Safety Report 21192561 (Version 3)
Quarter: 2023Q2

REPORT INFORMATION
  Report Type: Other
  Country: IT (occurrence: None)
  Receive Date: 20220809
  Receipt Date: 20230627
  Transmission Date: 20230721
  Serious: Yes (Other)
  Sender: FDA-Public Use
  Company Number: IT-ROCHE-3151381

PATIENT
  Age: 56 Year
  Sex: Female

DRUGS (3)
  1. OCRELIZUMAB [Suspect]
     Active Substance: OCRELIZUMAB
     Indication: Primary progressive multiple sclerosis
     Dosage: LAST ADMINISTRATION OF OCREVUS BEFORE THE VACCINATION:: 03/NOV/2020, FIRST ADMINISTRATION OF OCREVUS
     Route: 042
     Dates: start: 20180424
  2. OCRELIZUMAB [Suspect]
     Active Substance: OCRELIZUMAB
     Dosage: FIRST ADMINISTRATION OF OCREVUS AFTER THE 3RD DOSES OF ANTI-COVID VACCINE:
     Route: 042
     Dates: start: 20220217
  3. COMIRNATY [Suspect]
     Active Substance: TOZINAMERAN
     Indication: Product used for unknown indication
     Dosage: SUBSEQUENT DOSES ON :14/APR/2021, 03/OCT/2021
     Route: 065
     Dates: start: 20210324

REACTIONS (4)
  - Hypogammaglobulinaemia [Not Recovered/Not Resolved]
  - COVID-19 [Recovered/Resolved]
  - Inappropriate schedule of product administration [Unknown]
  - Off label use [Unknown]

NARRATIVE: CASE EVENT DATE: 20181017
